FAERS Safety Report 4615280-7 (Version None)
Quarter: 2005Q1

REPORT INFORMATION
  Report Type: 
  Country: None (occurrence: None)
  Receive Date: 20050322
  Receipt Date: 20050309
  Transmission Date: 20050727
  Serious: Yes (Death, Hospitalization)
  Sender: FDA-Public Use
  Company Number: US-GLAXOSMITHKLINE-A0549014A

PATIENT
  Age: 78 Year
  Sex: Male

DRUGS (2)
  1. BEXXAR [Suspect]
     Indication: NON-HODGKIN'S LYMPHOMA
     Route: 042
     Dates: end: 20041216
  2. BEXXAR [Suspect]
     Indication: NON-HODGKIN'S LYMPHOMA
     Route: 042
     Dates: end: 20041216

REACTIONS (3)
  - DEATH [None]
  - DISEASE PROGRESSION [None]
  - PLATELET COUNT DECREASED [None]
